FAERS Safety Report 5375678-9 (Version None)
Quarter: 2007Q2

REPORT INFORMATION
  Report Type: 
  Country: None (occurrence: None)
  Receive Date: 20070629
  Receipt Date: 20070615
  Transmission Date: 20071010
  Serious: Yes (Death)
  Sender: FDA-Public Use
  Company Number: BR-PFIZER INC-2007052478

PATIENT
  Age: 3 Year
  Sex: Male

DRUGS (2)
  1. VFEND [Suspect]
     Indication: ASPERGILLOSIS
  2. AMBISOME [Concomitant]

REACTIONS (2)
  - ASPERGILLOSIS [None]
  - COMPLICATIONS OF TRANSPLANT SURGERY [None]
